FAERS Safety Report 5156186-7 (Version None)
Quarter: 2006Q4

REPORT INFORMATION
  Report Type: 
  Country: None (occurrence: None)
  Receive Date: 20061122
  Receipt Date: 20060111
  Transmission Date: 20070319
  Serious: Yes (Hospitalization)
  Sender: FDA-Public Use
  Company Number: AU-PURDUE-GBR_2006_0002066

PATIENT
  Age: 70 Year
  Sex: Female

DRUGS (9)
  1. OXYCODONE HCL [Suspect]
     Indication: PAIN
     Dosage: 40 MG, BID
     Route: 065
  2. FLUVOXAMINE MALEATE [Interacting]
     Indication: DEPRESSION
     Dosage: 200 MG, AM
     Route: 065
  3. DOXEPIN HCL [Concomitant]
     Indication: DEPRESSION
     Dosage: 50 MG, NOCTE
     Route: 065
  4. DICLOFENAC SODIUM [Concomitant]
     Indication: DRUG USE FOR UNKNOWN INDICATION
     Dosage: 50 MG, BID
     Route: 065
  5. RALOXIFENE [Concomitant]
     Indication: DRUG USE FOR UNKNOWN INDICATION
     Dosage: 60 MG, DAILY
     Route: 065
  6. CALCIUM CARBONATE [Concomitant]
     Indication: DRUG USE FOR UNKNOWN INDICATION
     Dosage: 600 MG, DAILY
     Route: 065
  7. DILTIAZEM HCL [Concomitant]
     Indication: DRUG USE FOR UNKNOWN INDICATION
     Dosage: 240 MG, DAILY
     Route: 065
  8. SIMVASTATIN [Concomitant]
     Indication: DRUG USE FOR UNKNOWN INDICATION
     Dosage: 40 MG, DAILY
     Route: 065
  9. OXYCODONE HCL [Suspect]
     Indication: PAIN
     Dosage: 60 MG IN 24 HRS
     Route: 065

REACTIONS (2)
  - DRUG INTERACTION [None]
  - SEROTONIN SYNDROME [None]
